FAERS Safety Report 10249169 (Version 1)
Quarter: 2014Q2

REPORT INFORMATION
  Report Type: Spontaneous
  Country: US (occurrence: US)
  Receive Date: 20140620
  Receipt Date: 20140620
  Transmission Date: 20141212
  Serious: No
  Sender: FDA-Public Use
  Company Number: US-ASTRAZENECA-2014SE40847

PATIENT
  Age: 67 Year
  Sex: Male
  Weight: 68.9 kg

DRUGS (2)
  1. SYMBICORT [Suspect]
     Indication: CHRONIC OBSTRUCTIVE PULMONARY DISEASE
     Dosage: 160/4.5  2 PUFFS BID
     Route: 055
     Dates: start: 201405
  2. COZAAR [Concomitant]
     Indication: BLOOD PRESSURE ABNORMAL
     Route: 048
     Dates: start: 2004

REACTIONS (5)
  - Abdominal pain upper [Not Recovered/Not Resolved]
  - Cough [Unknown]
  - Throat irritation [Recovered/Resolved]
  - Emotional distress [Not Recovered/Not Resolved]
  - Intentional product misuse [Unknown]
